FAERS Safety Report 7857948-5 (Version None)
Quarter: 2011Q4

REPORT INFORMATION
  Report Type: 
  Country: None (occurrence: None)
  Receive Date: 20111027
  Receipt Date: 20111013
  Transmission Date: 20120403
  Serious: Yes (Other)
  Sender: FDA-Public Use
  Company Number: US-BAYER-201036933NA

PATIENT
  Age: 31 Year
  Sex: Female
  Weight: 52.154 kg

DRUGS (6)
  1. YAZ [Suspect]
     Indication: CONTRACEPTION
     Dosage: UNK UNK, UNK
     Route: 048
     Dates: start: 20090601, end: 20100201
  2. CEPHALEXIN [Concomitant]
     Dosage: 500 MG, UNK
     Route: 048
     Dates: start: 20090614
  3. BUPROPION HYDROCHLORIDE [Concomitant]
     Dosage: 200 MG, UNK
     Route: 048
     Dates: start: 20090227
  4. YASMIN [Suspect]
     Indication: CONTRACEPTION
     Dosage: UNK
     Route: 048
     Dates: start: 20050101, end: 20051001
  5. NEWMAN'S NIPPLE OINTMENT [Concomitant]
     Dosage: UNK
     Route: 061
     Dates: start: 20090519
  6. AMOXICILLIN [Concomitant]
     Dosage: 500 MG, UNK
     Route: 048
     Dates: start: 20090503

REACTIONS (10)
  - CHOLELITHIASIS [None]
  - VOMITING [None]
  - APPETITE DISORDER [None]
  - GALLBLADDER DISORDER [None]
  - ABNORMAL LOSS OF WEIGHT [None]
  - FATIGUE [None]
  - CHOLECYSTITIS CHRONIC [None]
  - EMOTIONAL DISTRESS [None]
  - MALAISE [None]
  - APHAGIA [None]
